FAERS Safety Report 7031639-5 (Version None)
Quarter: 2010Q4

REPORT INFORMATION
  Report Type: 
  Country: None (occurrence: None)
  Receive Date: 20101006
  Receipt Date: 20101006
  Transmission Date: 20110411
  Serious: Yes (Other)
  Sender: FDA-Public Use
  Company Number: None

PATIENT
  Age: 23 Year
  Sex: Male

DRUGS (2)
  1. SUBOXONE [Suspect]
     Dosage: 2MG
  2. ADDERALL 10 [Concomitant]

REACTIONS (7)
  - ABDOMINAL PAIN [None]
  - ACARODERMATITIS [None]
  - BLISTER [None]
  - CHROMATURIA [None]
  - RASH [None]
  - TINEA CRURIS [None]
  - TINEA PEDIS [None]
